FAERS Safety Report 12695742 (Version 1)
Quarter: 2016Q3

REPORT INFORMATION
  Report Type: Spontaneous
  Country: US (occurrence: US)
  Receive Date: 20160829
  Receipt Date: 20160829
  Transmission Date: 20161109
  Serious: No
  Sender: FDA-Public Use
  Company Number: US-BIOGEN-2016BI00280893

PATIENT
  Sex: Female

DRUGS (1)
  1. TYSABRI [Suspect]
     Active Substance: NATALIZUMAB
     Indication: MULTIPLE SCLEROSIS
     Route: 065
     Dates: start: 20160701

REACTIONS (6)
  - Emotional distress [Unknown]
  - Musculoskeletal disorder [Unknown]
  - Depressed mood [Unknown]
  - Anxiety [Unknown]
  - Stress [Unknown]
  - Mobility decreased [Unknown]
